FAERS Safety Report 10190119 (Version 1)
Quarter: 2014Q2

REPORT INFORMATION
  Report Type: Spontaneous
  Country: US (occurrence: US)
  Receive Date: 20140522
  Receipt Date: 20140522
  Transmission Date: 20141212
  Serious: No
  Sender: FDA-Public Use
  Company Number: US-ASTRAZENECA-2013SE77297

PATIENT
  Age: 13 Year
  Sex: Female
  Weight: 48.1 kg

DRUGS (1)
  1. PULMICORT FLEXHALER [Suspect]
     Indication: ASTHMA
     Dosage: 180MCG 1 INHALATION BID
     Route: 055
     Dates: start: 201306

REACTIONS (3)
  - Cough [Recovered/Resolved]
  - Intentional product misuse [Unknown]
  - Off label use [Unknown]
